FAERS Safety Report 20361870 (Version 1)
Quarter: 2022Q1

REPORT INFORMATION
  Report Type: Spontaneous
  Country: DE (occurrence: None)
  Receive Date: 20220121
  Receipt Date: 20220121
  Transmission Date: 20220423
  Serious: Yes (Other)
  Sender: FDA-Public Use
  Company Number: 2022A020929

PATIENT
  Age: 55 Year
  Sex: Female
  Weight: 97 kg

DRUGS (1)
  1. DAPAGLIFLOZIN [Suspect]
     Active Substance: DAPAGLIFLOZIN
     Indication: Chronic kidney disease
     Dosage: 10 MG
     Route: 048
     Dates: start: 20210926, end: 20220104

REACTIONS (1)
  - Liver injury [Recovered/Resolved with Sequelae]

NARRATIVE: CASE EVENT DATE: 20211230
